FAERS Safety Report 15044239 (Version 3)
Quarter: 2018Q4

REPORT INFORMATION
  Report Type: Spontaneous
  Country: US (occurrence: US)
  Receive Date: 20180621
  Receipt Date: 20181205
  Transmission Date: 20190204
  Serious: No
  Sender: FDA-Public Use
  Company Number: US-PFIZER INC-2018246808

PATIENT
  Age: 14 Year
  Sex: Male
  Weight: 103.4 kg

DRUGS (9)
  1. SOMAVERT [Suspect]
     Active Substance: PEGVISOMANT
     Dosage: 30 MG, UNK
     Dates: start: 20181113
  2. METFORMIN [Concomitant]
     Active Substance: METFORMIN HYDROCHLORIDE
     Dosage: UNK
  3. SOMAVERT [Suspect]
     Active Substance: PEGVISOMANT
     Indication: BRAIN NEOPLASM
     Dosage: 20 MG, ONCE A DAY
     Route: 058
     Dates: start: 201704
  4. SOMAVERT [Suspect]
     Active Substance: PEGVISOMANT
     Dosage: UNK, EVERY OTHER DAY
  5. SOMAVERT [Suspect]
     Active Substance: PEGVISOMANT
     Indication: PITUITARY TUMOUR BENIGN
     Dosage: 10 MG, UNK
     Dates: start: 201704
  6. SYNTHROID [Concomitant]
     Active Substance: LEVOTHYROXINE SODIUM
     Dosage: UNK
  7. HCTZ [Concomitant]
     Active Substance: HYDROCHLOROTHIAZIDE
     Dosage: UNK
  8. SIGNIFOR [Concomitant]
     Active Substance: PASIREOTIDE
     Dosage: UNK
  9. TESTOSTERONE. [Concomitant]
     Active Substance: TESTOSTERONE
     Dosage: UNK

REACTIONS (1)
  - Product dose omission [Unknown]

NARRATIVE: CASE EVENT DATE: 201704
